FAERS Safety Report 21098901 (Version 1)
Quarter: 2022Q3

REPORT INFORMATION
  Report Type: Spontaneous
  Country: US (occurrence: US)
  Receive Date: 20220719
  Receipt Date: 20220719
  Transmission Date: 20221026
  Serious: Yes (Congenital Anomaly, Other)
  Sender: FDA-Public Use
  Company Number: US-ABBVIE-22K-163-4463471-00

PATIENT
  Sex: Male

DRUGS (1)
  1. DEPAKOTE [Suspect]
     Active Substance: DIVALPROEX SODIUM
     Indication: Maternal exposure timing unspecified
     Route: 064

REACTIONS (30)
  - Talipes [Unknown]
  - Epilepsy [Unknown]
  - Bone operation [Unknown]
  - Knee operation [Unknown]
  - Developmental delay [Unknown]
  - Diplegia [Unknown]
  - Musculoskeletal stiffness [Unknown]
  - Visual impairment [Unknown]
  - Rash [Unknown]
  - Excessive cerumen production [Unknown]
  - Back pain [Unknown]
  - Foetal exposure during pregnancy [Unknown]
  - Attention deficit hyperactivity disorder [Unknown]
  - Cognitive disorder [Unknown]
  - Selective IgA immunodeficiency [Unknown]
  - Scoliosis [Unknown]
  - Abnormal behaviour [Unknown]
  - Mental impairment [Unknown]
  - Learning disability [Unknown]
  - Fall [Unknown]
  - Gait disturbance [Unknown]
  - Fine motor skill dysfunction [Unknown]
  - Short stature [Unknown]
  - Arthropathy [Unknown]
  - Ligament disorder [Unknown]
  - Skin exfoliation [Unknown]
  - Acne [Unknown]
  - Oral herpes [Unknown]
  - Limb injury [Unknown]
  - Muscular weakness [Unknown]

NARRATIVE: CASE EVENT DATE: 20120101
